FAERS Safety Report 4766988-4 (Version None)
Quarter: 2005Q3

REPORT INFORMATION
  Report Type: 
  Country: None (occurrence: None)
  Receive Date: 20050909
  Receipt Date: 20050909
  Transmission Date: 20060218
  Serious: Yes (Other)
  Sender: FDA-Public Use
  Company Number: None

PATIENT
  Age: 34 Year
  Sex: Female
  Weight: 65.318 kg

DRUGS (2)
  1. SINGULAIR [Suspect]
     Indication: HYPERSENSITIVITY
     Dosage: 1 TABLET EVERY EVENING ORAL
     Route: 048
     Dates: start: 20050617, end: 20050909
  2. CLARINEX [Suspect]
     Indication: HYPERSENSITIVITY
     Dosage: 1 TABLET EVERY EVENING  ORAL
     Route: 048
     Dates: start: 20050617, end: 20050909

REACTIONS (5)
  - DEPRESSION [None]
  - DRY SKIN [None]
  - FATIGUE [None]
  - HAIR TEXTURE ABNORMAL [None]
  - WEIGHT INCREASED [None]
